FAERS Safety Report 7798965-3 (Version None)
Quarter: 2011Q4

REPORT INFORMATION
  Report Type: 
  Country: None (occurrence: None)
  Receive Date: 20111006
  Receipt Date: 20110928
  Transmission Date: 20120403
  Serious: Yes (Hospitalization)
  Sender: FDA-Public Use
  Company Number: JP-ASTELLAS-2011JP006873

PATIENT
  Age: 28 Year
  Sex: Female
  Weight: 50.5 kg

DRUGS (17)
  1. PREDNISOLONE [Concomitant]
     Dosage: 8 MG, UNKNOWN/D
     Route: 048
     Dates: start: 20091203
  2. ADALAT [Concomitant]
     Dosage: 20 MG, UNKNOWN/D
     Route: 048
  3. OMEPRAZOLE [Concomitant]
     Dosage: 10 MG, UNKNOWN/D
     Route: 048
  4. LOXONIN [Concomitant]
     Indication: HEADACHE
     Dosage: 60 MG, UNKNOWN/D
     Route: 048
     Dates: start: 20100527, end: 20100707
  5. TACROLIMUS [Suspect]
     Indication: LUPUS NEPHRITIS
     Dosage: 2 MG, UNKNOWN/D
     Route: 048
     Dates: start: 20090903
  6. PREDNISOLONE [Concomitant]
     Indication: LUPUS NEPHRITIS
     Dosage: 11 MG, UNKNOWN/D
     Route: 048
     Dates: end: 20090902
  7. ASPIRIN [Concomitant]
     Indication: LUPUS NEPHRITIS
     Dosage: 100 MG, UNKNOWN/D
     Route: 048
  8. RISPERDAL [Concomitant]
     Indication: SCHIZOPHRENIA
     Dosage: UNK
     Route: 048
     Dates: end: 20091202
  9. DEPAS [Concomitant]
     Indication: INSOMNIA
     Dosage: 3 MG, UNKNOWN/D
     Route: 048
     Dates: start: 20100724
  10. PREDNISOLONE [Concomitant]
     Dosage: 10 MG, UNKNOWN/D
     Route: 048
     Dates: start: 20090903, end: 20090930
  11. ACTONEL [Concomitant]
     Dosage: 17.5 MG, WEEKLY
     Route: 048
  12. PREDNISOLONE [Concomitant]
     Dosage: 9 MG, UNKNOWN/D
     Route: 048
     Dates: start: 20091001, end: 20091202
  13. CARVEDILOL [Concomitant]
     Dosage: 2.5 MG, UNKNOWN/D
     Route: 048
  14. BLONANSERIN [Concomitant]
     Indication: SCHIZOPHRENIA
     Dosage: 4 MG, UNKNOWN/D
     Route: 048
     Dates: start: 20100723, end: 20100819
  15. SULFAMETHOXAZOLE [Concomitant]
     Dosage: 0.5 DF, UNKNOWN/D
     Route: 048
  16. MUCOSTA [Concomitant]
     Dosage: UNK
     Route: 048
     Dates: end: 20100317
  17. RISPERDAL [Concomitant]
     Dosage: 1 MG, UNKNOWN/D
     Route: 048
     Dates: start: 20100724

REACTIONS (2)
  - HEADACHE [None]
  - SCHIZOPHRENIA [None]
